FAERS Safety Report 7496590-5 (Version None)
Quarter: 2011Q2

REPORT INFORMATION
  Report Type: 
  Country: None (occurrence: None)
  Receive Date: 20110523
  Receipt Date: 20110510
  Transmission Date: 20111010
  Serious: Yes (Hospitalization)
  Sender: FDA-Public Use
  Company Number: US-ELI_LILLY_AND_COMPANY-US201006000705

PATIENT
  Sex: Male
  Weight: 75.21 kg

DRUGS (24)
  1. TERAZOSIN HYDROCHLORIDE [Concomitant]
     Indication: PROSTATE CANCER
     Dosage: 2 MG, EACH EVENING
     Route: 048
     Dates: start: 20020101
  2. POTASSIUM CHLORIDE [Concomitant]
     Indication: MEDICAL DIET
     Dosage: 10 MEQ, UNK
     Route: 048
     Dates: start: 20020101
  3. HYCODAN /USA/ [Concomitant]
     Indication: COUGH
     Route: 048
     Dates: start: 20100420
  4. HYDRALAZINE HCL [Concomitant]
     Indication: CARDIAC DISORDER
     Dosage: 10 MG, 3/D
     Route: 048
     Dates: start: 19980101
  5. VITAMIN B-12 [Concomitant]
     Dosage: 1000 MG, OTHER
     Dates: start: 20100323
  6. MIRALAX [Concomitant]
     Indication: CONSTIPATION
     Dosage: UNK, AS NEEDED
     Route: 048
     Dates: start: 20100427
  7. CETUXIMAB [Suspect]
     Indication: NON-SMALL CELL LUNG CANCER
     Dosage: 384 MG, OTHER
     Route: 042
     Dates: start: 20100406, end: 20100518
  8. PEMETREXED [Suspect]
     Indication: NON-SMALL CELL LUNG CANCER
     Dosage: 960 MG, OTHER
     Route: 042
     Dates: start: 20100407, end: 20100518
  9. ASPIRIN [Concomitant]
     Indication: PROPHYLAXIS
     Dosage: 325 MG, OTHER
     Dates: start: 19980101
  10. VIBRAMYCIN /00055702/ [Concomitant]
     Indication: DERMATITIS
     Dosage: 100 MG, DAILY (1/D)
     Route: 048
     Dates: start: 20100420
  11. SODIUM CHLORIDE [Concomitant]
     Indication: DEHYDRATION
     Dosage: 1 LITER, OTHER
     Route: 042
     Dates: start: 20100511, end: 20100511
  12. MAGNESIUM [Concomitant]
     Dosage: 400 MG, 2/D
     Route: 048
     Dates: start: 20100601
  13. CARBOPLATIN [Suspect]
     Indication: NON-SMALL CELL LUNG CANCER
     Dosage: 412 MG, OTHER
     Route: 042
     Dates: start: 20100407, end: 20100518
  14. SIMVASTATIN [Concomitant]
     Indication: HYPERCHOLESTEROLAEMIA
     Dosage: 40 MG, EACH EVENING
     Route: 048
     Dates: start: 19990101
  15. FOLIC ACID [Concomitant]
     Indication: PREMEDICATION
     Dosage: 1 MG, OTHER
     Route: 048
     Dates: start: 20100323
  16. ZOFRAN [Concomitant]
     Indication: PREMEDICATION
     Dosage: 32 MG, OTHER
     Route: 042
     Dates: start: 20100407
  17. COMPAZINE [Concomitant]
     Indication: NAUSEA
     Dosage: 10 MG, AS NEEDED
     Route: 048
     Dates: start: 20100511
  18. LOTRISONE [Concomitant]
     Indication: DERMATITIS
     Route: 061
     Dates: start: 20100511
  19. MAGNESIUM [Concomitant]
     Indication: MEDICAL DIET
     Dosage: 400 MG, DAILY (1/D)
     Route: 048
     Dates: start: 20100525, end: 20100525
  20. DEXAMETHASONE [Concomitant]
     Indication: PREMEDICATION
     Dosage: 4 MG, OTHER
     Route: 048
     Dates: start: 20100406
  21. SODIUM CHLORIDE [Concomitant]
     Dosage: 500 MG, DAILY (1/D)
     Route: 042
     Dates: start: 20100525, end: 20100525
  22. HYDROCHLOROTHIAZIDE [Concomitant]
     Indication: HYPERTENSION
     Dosage: 12.5 MG, DAILY (1/D)
     Route: 048
     Dates: start: 19980101
  23. METOPROLOL SUCCINATE [Concomitant]
     Indication: HYPERTENSION
     Dosage: 25 MG, DAILY (1/D)
     Route: 048
     Dates: start: 19980101
  24. MEGACE [Concomitant]
     Indication: INCREASED APPETITE
     Dosage: 1 D/F, DAILY (1/D)
     Route: 048
     Dates: start: 20100511

REACTIONS (1)
  - GASTROINTESTINAL HAEMORRHAGE [None]
